FAERS Safety Report 11368893 (Version 1)
Quarter: 2015Q3

REPORT INFORMATION
  Report Type: Report from Study
  Country: US (occurrence: None)
  Receive Date: 20150811
  Receipt Date: 20150811
  Transmission Date: 20151125
  Serious: Yes (Other)
  Sender: FDA-Public Use
  Company Number: US-2015CRT000500

PATIENT
  Age: 60 Year
  Sex: Female
  Weight: 88.4 kg

DRUGS (11)
  1. METFORMIN [Suspect]
     Active Substance: METFORMIN HYDROCHLORIDE
     Indication: PRODUCT USED FOR UNKNOWN INDICATION
     Dates: end: 201506
  2. LOMOTIL (ATROPINE SULFATE, DIPHENOXYLATE HYDROCHLORIDE) [Concomitant]
  3. ANTIBIOTICS (ANTIBIOTICS) [Suspect]
     Active Substance: UNSPECIFIED INGREDIENT
     Indication: TOOTH INFECTION
  4. ZOLOFT [Concomitant]
     Active Substance: SERTRALINE HYDROCHLORIDE
  5. KORLYM [Suspect]
     Active Substance: MIFEPRISTONE
     Indication: CUSHING^S SYNDROME
     Route: 048
     Dates: start: 20150417
  6. ASPIRIN (ACETYLSALICYLIC ACID) [Concomitant]
     Active Substance: ASPIRIN
  7. POTASSIUM [Concomitant]
     Active Substance: POTASSIUM
  8. PRILOSEC (OMEPRAZOLE) [Concomitant]
     Active Substance: OMEPRAZOLE MAGNESIUM
  9. TRILIPIX [Concomitant]
     Active Substance: FENOFIBRIC ACID
  10. ALDACTONE [Concomitant]
     Active Substance: SPIRONOLACTONE
  11. MEVACOR (LOVASTATIN) [Concomitant]

REACTIONS (9)
  - Influenza like illness [None]
  - Fatigue [None]
  - Abdominal discomfort [None]
  - Tooth infection [None]
  - Hypokalaemia [None]
  - Feeling jittery [None]
  - Duodenal ulcer [None]
  - Glycosylated haemoglobin decreased [None]
  - Nausea [None]

NARRATIVE: CASE EVENT DATE: 201504
